FAERS Safety Report 18175846 (Version 4)
Quarter: 2021Q1

REPORT INFORMATION
  Report Type: Report from Study
  Country: US (occurrence: US)
  Receive Date: 20200820
  Receipt Date: 20210204
  Transmission Date: 20210419
  Serious: Yes (Other)
  Sender: FDA-Public Use
  Company Number: US-SA-2017SA137992

PATIENT
  Age: 35 Year
  Sex: Male
  Weight: 63.9 kg

DRUGS (1)
  1. ALEMTUZUMAB [Suspect]
     Active Substance: ALEMTUZUMAB
     Indication: MULTIPLE SCLEROSIS
     Dosage: 12 MG,/1.2 ML QD
     Route: 041
     Dates: start: 20170724, end: 20170728

REACTIONS (11)
  - Cognitive disorder [Unknown]
  - Platelet morphology abnormal [Not Recovered/Not Resolved]
  - Autoimmune disorder [Unknown]
  - Condition aggravated [Unknown]
  - Immunodeficiency [Unknown]
  - Vascular pain [Recovered/Resolved]
  - Red blood cell morphology abnormal [Unknown]
  - Neutropenia [Unknown]
  - Lymphocyte count decreased [Unknown]
  - Antinuclear antibody positive [Unknown]
  - Vasodilatation [Recovered/Resolved]

NARRATIVE: CASE EVENT DATE: 20180706
